FAERS Safety Report 7006021-7 (Version None)
Quarter: 2010Q3

REPORT INFORMATION
  Report Type: 
  Country: None (occurrence: None)
  Receive Date: 20100921
  Receipt Date: 20100908
  Transmission Date: 20110219
  Serious: Yes (Death)
  Sender: FDA-Public Use
  Company Number: JP-GENZYME-THYM-1001824

PATIENT
  Age: 52 Year
  Sex: Male

DRUGS (1)
  1. THYMOGLOBULIN [Suspect]
     Indication: BONE MARROW CONDITIONING REGIMEN
     Dosage: 2.5 MG/KG, QD
     Route: 042
     Dates: start: 20100113, end: 20100114

REACTIONS (1)
  - DEATH [None]
